FAERS Safety Report 5693413-1 (Version None)
Quarter: 2008Q2

REPORT INFORMATION
  Report Type: 
  Country: None (occurrence: None)
  Receive Date: 20080402
  Receipt Date: 20080402
  Transmission Date: 20081010
  Serious: No
  Sender: FDA-Public Use
  Company Number: None

PATIENT
  Sex: Male
  Weight: 63.5036 kg

DRUGS (2)
  1. MULTIVITAMIN [Suspect]
     Indication: MACULAR DEGENERATION
     Dosage: ONE (1) ONE (1) PM
     Dates: start: 20060101
  2. PRESERVISION [Suspect]
     Indication: MACULAR DEGENERATION
     Dosage: ONE (1) ONE (1) AM
     Dates: start: 20060101

REACTIONS (1)
  - PHARMACEUTICAL PRODUCT COMPLAINT [None]
